FAERS Safety Report 12629612 (Version 4)
Quarter: 2016Q3

REPORT INFORMATION
  Report Type: Spontaneous
  Country: ES (occurrence: ES)
  Receive Date: 20160808
  Receipt Date: 20160920
  Transmission Date: 20161109
  Serious: Yes (Death)
  Sender: FDA-Public Use
  Company Number: ES-SA-2016SA143715

PATIENT
  Age: 41 Year
  Sex: Female

DRUGS (8)
  1. CARVEDILOL. [Concomitant]
     Active Substance: CARVEDILOL
     Dates: start: 20160722, end: 201608
  2. CITALOPRAM [Concomitant]
     Active Substance: CITALOPRAM HYDROBROMIDE
     Dates: start: 20160722, end: 201608
  3. AMANTADINE [Concomitant]
     Active Substance: AMANTADINE
     Dates: start: 20160429, end: 201608
  4. ZALDIAR [Concomitant]
     Active Substance: ACETAMINOPHEN\TRAMADOL HYDROCHLORIDE
     Dosage: 37.5 MG OF TRAMADOL HYDROCHLORIDE AND 325 MG OF PARACETAMOL
     Dates: start: 20160507
  5. AUBAGIO [Suspect]
     Active Substance: TERIFLUNOMIDE
     Indication: RELAPSING-REMITTING MULTIPLE SCLEROSIS
     Route: 048
     Dates: start: 20160405, end: 20160801
  6. HIDROFEROL [Concomitant]
     Active Substance: CALCIFEDIOL
     Dosage: 0,266 MG/15 DAYS
     Dates: start: 20160427
  7. EXFORGE HCT [Concomitant]
     Active Substance: AMLODIPINE BESYLATE\HYDROCHLOROTHIAZIDE\VALSARTAN
     Dosage: 10 MG AMLODIPINE, 160 MG VALSARTAN, AND 25 MG HYDROCHLOROTHIAZIDE/DAY
     Dates: start: 20160429, end: 201608
  8. RIVOTRIL [Concomitant]
     Active Substance: CLONAZEPAM
     Dates: start: 20160722, end: 201608

REACTIONS (2)
  - Cardiac arrest [Fatal]
  - Dyspnoea [Fatal]

NARRATIVE: CASE EVENT DATE: 20160802
